FAERS Safety Report 6123195-0 (Version None)
Quarter: 2009Q1

REPORT INFORMATION
  Report Type: 
  Country: None (occurrence: None)
  Receive Date: 20090318
  Receipt Date: 20090310
  Transmission Date: 20090719
  Serious: Yes (Other)
  Sender: FDA-Public Use
  Company Number: PHHY2009TR09119

PATIENT
  Age: 73 Year
  Sex: Female

DRUGS (6)
  1. VOLTAREN [Suspect]
     Indication: JOINT SWELLING
     Dosage: 75 MG, BID
     Route: 048
     Dates: start: 20090218, end: 20090224
  2. COUMADIN [Concomitant]
  3. PERINDOPRIL ERBUMINE [Concomitant]
  4. NORVASC [Concomitant]
  5. VENTOLIN [Concomitant]
  6. BETASERC [Concomitant]

REACTIONS (2)
  - CONJUNCTIVAL HAEMORRHAGE [None]
  - RECTAL HAEMORRHAGE [None]
